FAERS Safety Report 19019612 (Version 1)
Quarter: 2021Q1

REPORT INFORMATION
  Report Type: Spontaneous
  Country: CN (occurrence: CN)
  Receive Date: 20210316
  Receipt Date: 20210316
  Transmission Date: 20210420
  Serious: Yes (Other)
  Sender: FDA-Public Use
  Company Number: CN-BAXTER-2021BAX004857

PATIENT
  Age: 45 Year
  Sex: Female
  Weight: 57 kg

DRUGS (12)
  1. 0.9% SODIUM CHLORIDE INJECTION [Suspect]
     Active Substance: SODIUM CHLORIDE
     Dosage: THIRD CHEMOTHERAPY, NS+ ENDOXAN 950 MG
     Route: 042
     Dates: start: 20201228, end: 20201228
  2. 0.9% SODIUM CHLORIDE INJECTION [Suspect]
     Active Substance: SODIUM CHLORIDE
     Dosage: DOSE RE?INTRODUCED, NS+ ENDOXAN
     Route: 042
  3. PHARMORUBICIN [Suspect]
     Active Substance: EPIRUBICIN
     Dosage: DOSE RE?INTRODUCED,  PHARMORUBICIN + NS
     Route: 041
  4. ENDOXAN [Suspect]
     Active Substance: CYCLOPHOSPHAMIDE
     Indication: BREAST CANCER FEMALE
     Dosage: FIRST TWO CHEMOTHERAPIES, ENDOXAN + NORMAL SALINE (NS)
     Route: 042
  5. 0.9% SODIUM CHLORIDE INJECTION [Suspect]
     Active Substance: SODIUM CHLORIDE
     Dosage: DOSE RE?INTRODUCED, NS+ PHARMORUBICIN
     Route: 041
  6. 0.9% SODIUM CHLORIDE INJECTION [Suspect]
     Active Substance: SODIUM CHLORIDE
     Indication: MEDICATION DILUTION
     Dosage: FIRST TWO CHEMOTHERAPIES, NS+ ENDOXAN
     Route: 042
  7. 0.9% SODIUM CHLORIDE INJECTION [Suspect]
     Active Substance: SODIUM CHLORIDE
     Dosage: THIRD CHEMOTHERAPY, NS+ PHARMORUBICIN 137 MG
     Route: 041
     Dates: start: 20201228, end: 20201228
  8. PHARMORUBICIN [Suspect]
     Active Substance: EPIRUBICIN
     Indication: BREAST CANCER FEMALE
     Dosage: FIRST TWO CHEMOTHERAPIES OF PHARMORUBICIN + NS
     Route: 041
  9. PHARMORUBICIN [Suspect]
     Active Substance: EPIRUBICIN
     Dosage: THIRD CHEMOTHERAPY OF PHARMORUBICIN + NS 100 ML
     Route: 041
     Dates: start: 20201228, end: 20201228
  10. ENDOXAN [Suspect]
     Active Substance: CYCLOPHOSPHAMIDE
     Dosage: THIRD CHEMOTHERAPY, ENDOXAN + NORMAL SALINE (NS) 50 ML
     Route: 042
     Dates: start: 20201228, end: 20201228
  11. 0.9% SODIUM CHLORIDE INJECTION [Suspect]
     Active Substance: SODIUM CHLORIDE
     Dosage: FIRST TWO CHEMOTHERAPIES, NS+ PHARMORUBICIN
     Route: 041
  12. ENDOXAN [Suspect]
     Active Substance: CYCLOPHOSPHAMIDE
     Dosage: DOSE RE?INTRODUCED, ENDOXAN + NS
     Route: 042

REACTIONS (2)
  - Leukopenia [Recovering/Resolving]
  - Agranulocytosis [Recovering/Resolving]

NARRATIVE: CASE EVENT DATE: 20210104
